FAERS Safety Report 6696729-5 (Version None)
Quarter: 2010Q2

REPORT INFORMATION
  Report Type: 
  Country: None (occurrence: None)
  Receive Date: 20100421
  Receipt Date: 20100301
  Transmission Date: 20101027
  Serious: No
  Sender: FDA-Public Use
  Company Number: US-000057

PATIENT
  Sex: Male

DRUGS (1)
  1. KUVAN [Suspect]
     Dosage: (ORAL)
     Route: 048

REACTIONS (3)
  - APPETITE DISORDER [None]
  - DECREASED APPETITE [None]
  - WEIGHT DECREASED [None]
